FAERS Safety Report 16034400 (Version 1)
Quarter: 2019Q1

REPORT INFORMATION
  Report Type: Spontaneous
  Country: US (occurrence: US)
  Receive Date: 20190305
  Receipt Date: 20190305
  Transmission Date: 20190418
  Serious: No
  Sender: FDA-Public Use
  Company Number: US-PFIZER INC-2019083278

PATIENT
  Age: 65 Year
  Sex: Female
  Weight: 83.91 kg

DRUGS (6)
  1. VITAMIN D [Concomitant]
     Active Substance: CHOLECALCIFEROL
     Indication: VITAMIN D DEFICIENCY
     Dosage: 50000 IU, UNK [50000 IU 3 TIMES A WEEK]
  2. DOXYCYCLINE. [Concomitant]
     Active Substance: DOXYCYCLINE
     Indication: INFLAMMATION
     Dosage: 50 MG, 1X/DAY
     Route: 048
  3. TESTOSTERONE. [Concomitant]
     Active Substance: TESTOSTERONE
     Indication: MEIBOMIAN GLAND DYSFUNCTION
     Dosage: UNK
  4. FLEBOGAMMA [ALLANTOIN;HEPARIN SODIUM] [Concomitant]
     Indication: HYPOGAMMAGLOBULINAEMIA
     Dosage: 30 G, CYCLIC [30 GRAMS EVERY 21 DAYS]
  5. CLINDAMYCIN PHOSPHATE. [Concomitant]
     Active Substance: CLINDAMYCIN PHOSPHATE
     Indication: SKIN INFECTION
     Dosage: UNK
     Route: 061
  6. LIOTHYRONINE SODIUM. [Suspect]
     Active Substance: LIOTHYRONINE SODIUM
     Indication: AUTOIMMUNE THYROIDITIS
     Dosage: 25 UG, 3X/DAY

REACTIONS (2)
  - Thyroid disorder [Unknown]
  - Drug ineffective [Unknown]
